FAERS Safety Report 4817827-4 (Version None)
Quarter: 2005Q3

REPORT INFORMATION
  Report Type: 
  Country: None (occurrence: None)
  Receive Date: 20050929
  Receipt Date: 20050627
  Transmission Date: 20060218
  Serious: No
  Sender: FDA-Public Use
  Company Number: 05P-163-0304140-00

PATIENT
  Age: 76 Year
  Sex: Female
  Weight: 61.2356 kg

DRUGS (9)
  1. HUMIRA [Suspect]
     Indication: RHEUMATOID ARTHRITIS
     Dosage: 40 MG, 1 IN 2, SUBCUTANEOUS
     Route: 058
     Dates: start: 20040101
  2. LEVOTHYROXINE SODIUM [Concomitant]
  3. METHYLPREDNISOLONE [Concomitant]
  4. LEFLUNOMIDE [Concomitant]
  5. BENAZEPRIL HYDROCHLORIDE [Concomitant]
  6. TOPROL-XL [Concomitant]
  7. HYDRALAZINE [Concomitant]
  8. OXYCODONE HCL [Concomitant]
  9. GABAPENTIN [Concomitant]

REACTIONS (1)
  - URTICARIA [None]
